FAERS Safety Report 23933006 (Version 16)
Quarter: 2025Q4

REPORT INFORMATION
  Report Type: Report from Study
  Country: CN (occurrence: CN)
  Receive Date: 20240603
  Receipt Date: 20251217
  Transmission Date: 20260118
  Serious: Yes (Life-Threatening, Other)
  Sender: ROCHE
  Company Number: CN-ROCHE-3571677

PATIENT
  Age: 54 Year
  Sex: Male
  Weight: 72.5 kg

DRUGS (141)
  1. POLATUZUMAB VEDOTIN [Suspect]
     Active Substance: POLATUZUMAB VEDOTIN
     Indication: Diffuse large B-cell lymphoma
     Route: 041
     Dates: end: 20231112
  2. RITUXIMAB [Suspect]
     Active Substance: RITUXIMAB
     Indication: Diffuse large B-cell lymphoma
     Route: 041
     Dates: end: 20231120
  3. RITUXIMAB [Suspect]
     Active Substance: RITUXIMAB
     Route: 041
     Dates: start: 20231121, end: 20231121
  4. ETOPOSIDE [Suspect]
     Active Substance: ETOPOSIDE
     Indication: Diffuse large B-cell lymphoma
     Route: 041
     Dates: start: 20231111, end: 20231113
  5. ETOPOSIDE [Suspect]
     Active Substance: ETOPOSIDE
     Route: 041
     Dates: start: 20231115, end: 20231115
  6. CYCLOPHOSPHAMIDE [Suspect]
     Active Substance: CYCLOPHOSPHAMIDE
     Indication: Diffuse large B-cell lymphoma
     Route: 041
     Dates: end: 20231118
  7. DOXORUBICIN [Suspect]
     Active Substance: DOXORUBICIN
     Indication: Diffuse large B-cell lymphoma
     Route: 041
     Dates: start: 20231111, end: 20231113
  8. ZANUBRUTINIB [Suspect]
     Active Substance: ZANUBRUTINIB
     Indication: Diffuse large B-cell lymphoma
     Route: 048
     Dates: start: 20231111, end: 20231213
  9. EPIRUBICIN [Suspect]
     Active Substance: EPIRUBICIN
     Indication: Diffuse large B-cell lymphoma
     Route: 041
     Dates: start: 20231111, end: 20231115
  10. METHYLPREDNISOLONE SODIUM SUCCINATE [Concomitant]
     Active Substance: METHYLPREDNISOLONE SODIUM SUCCINATE
     Route: 041
     Dates: start: 20231108, end: 20231111
  11. METHYLPREDNISOLONE SODIUM SUCCINATE [Concomitant]
     Active Substance: METHYLPREDNISOLONE SODIUM SUCCINATE
     Route: 041
     Dates: start: 20231109, end: 20231111
  12. METHYLPREDNISOLONE SODIUM SUCCINATE [Concomitant]
     Active Substance: METHYLPREDNISOLONE SODIUM SUCCINATE
     Route: 041
     Dates: start: 20231117, end: 20231121
  13. METHYLPREDNISOLONE SODIUM SUCCINATE [Concomitant]
     Active Substance: METHYLPREDNISOLONE SODIUM SUCCINATE
     Route: 041
     Dates: start: 20231120, end: 20231121
  14. METHYLPREDNISOLONE SODIUM SUCCINATE [Concomitant]
     Active Substance: METHYLPREDNISOLONE SODIUM SUCCINATE
     Route: 041
     Dates: start: 20231211, end: 20231211
  15. Omeprazole enteric-coated capsules [Concomitant]
     Route: 048
     Dates: start: 20231108, end: 20231123
  16. SODIUM BICARBONATE [Concomitant]
     Active Substance: SODIUM BICARBONATE
     Route: 041
     Dates: start: 20231108, end: 20231113
  17. SODIUM BICARBONATE [Concomitant]
     Active Substance: SODIUM BICARBONATE
     Route: 041
     Dates: start: 20231113, end: 20231115
  18. SODIUM BICARBONATE [Concomitant]
     Active Substance: SODIUM BICARBONATE
     Route: 041
     Dates: start: 20231114, end: 20231123
  19. SODIUM BICARBONATE [Concomitant]
     Active Substance: SODIUM BICARBONATE
     Route: 041
     Dates: start: 20231122, end: 20231129
  20. SODIUM BICARBONATE [Concomitant]
     Active Substance: SODIUM BICARBONATE
     Route: 041
     Dates: start: 20231208, end: 20231208
  21. Levofloxacin sodium chloride injection [Concomitant]
     Dates: start: 20231109, end: 20231122
  22. Levofloxacin sodium chloride injection [Concomitant]
     Dates: start: 20231129, end: 20231210
  23. FUROSEMIDE [Concomitant]
     Active Substance: FUROSEMIDE
     Indication: Polyuria
     Route: 042
     Dates: start: 20231109, end: 20231126
  24. FUROSEMIDE [Concomitant]
     Active Substance: FUROSEMIDE
     Route: 042
     Dates: start: 20231125, end: 20231127
  25. FUROSEMIDE [Concomitant]
     Active Substance: FUROSEMIDE
     Route: 042
     Dates: start: 20231208, end: 20231208
  26. FUROSEMIDE [Concomitant]
     Active Substance: FUROSEMIDE
     Route: 042
     Dates: start: 20231210, end: 20231210
  27. RIVAROXABAN [Concomitant]
     Active Substance: RIVAROXABAN
     Route: 048
     Dates: start: 20231108, end: 20231113
  28. RIVAROXABAN [Concomitant]
     Active Substance: RIVAROXABAN
     Route: 048
     Dates: start: 20231109, end: 20231110
  29. GLUTATHIONE [Concomitant]
     Active Substance: GLUTATHIONE
     Route: 041
     Dates: start: 20231110, end: 20231123
  30. GLUTATHIONE [Concomitant]
     Active Substance: GLUTATHIONE
     Route: 041
     Dates: start: 20231208, end: 20231208
  31. Entecavir tablets [Concomitant]
     Route: 048
     Dates: start: 20231109, end: 20231109
  32. Entecavir tablets [Concomitant]
     Route: 048
     Dates: start: 20231110, end: 20231207
  33. Imipenem injection [Concomitant]
     Route: 041
     Dates: start: 20231127, end: 20231128
  34. Imipenem injection [Concomitant]
     Route: 041
     Dates: start: 20231209, end: 20231209
  35. Imipenem injection [Concomitant]
     Route: 041
     Dates: start: 20231211, end: 20231211
  36. ENOXAPARIN SODIUM [Concomitant]
     Active Substance: ENOXAPARIN SODIUM
     Dates: start: 20231115, end: 20231115
  37. AMIKACIN SULFATE [Concomitant]
     Active Substance: AMIKACIN SULFATE
     Route: 055
     Dates: start: 20231209, end: 20231210
  38. Potassium chloride sustained-release tablets [Concomitant]
     Dates: start: 20231124, end: 20231125
  39. Potassium chloride sustained-release tablets [Concomitant]
     Dates: start: 20231127, end: 20231129
  40. Potassium chloride sustained-release tablets [Concomitant]
     Dates: start: 20231128, end: 20231129
  41. Potassium chloride sustained-release tablets [Concomitant]
     Dates: start: 20231201, end: 20231201
  42. Potassium chloride sustained-release tablets [Concomitant]
     Dates: start: 20231208, end: 20231209
  43. DEXAMETHASONE SODIUM PHOSPHATE [Concomitant]
     Active Substance: DEXAMETHASONE SODIUM PHOSPHATE
     Route: 041
     Dates: start: 20231110, end: 20231113
  44. DEXAMETHASONE SODIUM PHOSPHATE [Concomitant]
     Active Substance: DEXAMETHASONE SODIUM PHOSPHATE
     Route: 041
     Dates: start: 20231115, end: 20231115
  45. DEXAMETHASONE SODIUM PHOSPHATE [Concomitant]
     Active Substance: DEXAMETHASONE SODIUM PHOSPHATE
     Route: 041
     Dates: start: 20231117, end: 20231118
  46. DEXAMETHASONE SODIUM PHOSPHATE [Concomitant]
     Active Substance: DEXAMETHASONE SODIUM PHOSPHATE
     Route: 041
     Dates: start: 20231121, end: 20231121
  47. DEXAMETHASONE SODIUM PHOSPHATE [Concomitant]
     Active Substance: DEXAMETHASONE SODIUM PHOSPHATE
     Route: 041
     Dates: start: 20231125, end: 20231125
  48. DEXAMETHASONE SODIUM PHOSPHATE [Concomitant]
     Active Substance: DEXAMETHASONE SODIUM PHOSPHATE
     Route: 041
     Dates: start: 20231127, end: 20231127
  49. CHLORHEXIDINE [Concomitant]
     Active Substance: CHLORHEXIDINE
     Dates: start: 20231113, end: 20231113
  50. CHLORHEXIDINE [Concomitant]
     Active Substance: CHLORHEXIDINE
     Dates: start: 20231120, end: 20231120
  51. Isosorbide nitrate injection [Concomitant]
     Dates: start: 20231113, end: 20231120
  52. Isosorbide nitrate injection [Concomitant]
     Dates: start: 20231117, end: 20231119
  53. Isosorbide nitrate injection [Concomitant]
     Dates: start: 20231121, end: 20231126
  54. FEBUXOSTAT [Concomitant]
     Active Substance: FEBUXOSTAT
     Route: 048
     Dates: start: 20231110, end: 20231115
  55. FEBUXOSTAT [Concomitant]
     Active Substance: FEBUXOSTAT
     Route: 048
     Dates: start: 20231114, end: 20231115
  56. NOREPINEPHRINE BITARTRATE [Concomitant]
     Active Substance: NOREPINEPHRINE BITARTRATE
     Dates: start: 20231116, end: 20231116
  57. NOREPINEPHRINE BITARTRATE [Concomitant]
     Active Substance: NOREPINEPHRINE BITARTRATE
     Dates: start: 20231213, end: 20231213
  58. Aureomycin eye ointment [Concomitant]
     Dates: start: 20231116, end: 20231116
  59. Etamsylate Injection [Concomitant]
     Route: 041
     Dates: start: 20231116, end: 20231205
  60. Recombinant human platelet [Concomitant]
     Route: 058
     Dates: start: 20231116, end: 20231205
  61. Vitamin B6 inj [Concomitant]
     Route: 041
     Dates: start: 20231116, end: 20231116
  62. Vitamin B6 inj [Concomitant]
     Route: 041
     Dates: start: 20231208, end: 20231208
  63. CETIRIZINE HYDROCHLORIDE [Concomitant]
     Active Substance: CETIRIZINE HYDROCHLORIDE
     Route: 048
     Dates: start: 20231116, end: 20231117
  64. CETIRIZINE HYDROCHLORIDE [Concomitant]
     Active Substance: CETIRIZINE HYDROCHLORIDE
     Route: 048
     Dates: start: 20231121, end: 20231125
  65. CETIRIZINE HYDROCHLORIDE [Concomitant]
     Active Substance: CETIRIZINE HYDROCHLORIDE
     Route: 048
     Dates: start: 20231127, end: 20231128
  66. CETIRIZINE HYDROCHLORIDE [Concomitant]
     Active Substance: CETIRIZINE HYDROCHLORIDE
     Route: 048
     Dates: start: 20231201, end: 20231203
  67. MUPIROCIN [Concomitant]
     Active Substance: MUPIROCIN
     Dates: start: 20231117, end: 20231117
  68. Human blood albumin [Concomitant]
     Route: 041
     Dates: start: 20231120, end: 20231120
  69. Human blood albumin [Concomitant]
     Route: 041
     Dates: start: 20231122, end: 20231206
  70. Human blood albumin [Concomitant]
     Route: 041
     Dates: start: 20231211, end: 20231211
  71. GRANULOCYTE COLONY-STIMULATING FACTOR NOS [Concomitant]
     Active Substance: GRANULOCYTE COLONY-STIMULATING FACTOR NOS
     Dates: start: 20231120, end: 20231202
  72. MEROPENEM [Concomitant]
     Active Substance: MEROPENEM
     Route: 042
     Dates: start: 20231121, end: 20231121
  73. MEROPENEM [Concomitant]
     Active Substance: MEROPENEM
     Route: 041
     Dates: start: 20231121, end: 20231127
  74. VORICONAZOLE [Concomitant]
     Active Substance: VORICONAZOLE
     Route: 042
     Dates: start: 20231121, end: 20231121
  75. VORICONAZOLE [Concomitant]
     Active Substance: VORICONAZOLE
     Dates: start: 20231122, end: 20231127
  76. VORICONAZOLE [Concomitant]
     Active Substance: VORICONAZOLE
     Route: 041
     Dates: start: 20231127, end: 20231127
  77. Indomethacin suppository [Concomitant]
  78. Indomethacin suppository [Concomitant]
     Dates: start: 20231125, end: 20231126
  79. Vancomycin for injection [Concomitant]
     Dates: start: 20231122, end: 20231123
  80. Vancomycin for injection [Concomitant]
     Route: 041
     Dates: start: 20231122, end: 20231127
  81. Magnesium isoglycyrrhizinate injection [Concomitant]
     Route: 041
     Dates: start: 20231122, end: 20231128
  82. Vitamin B2 tablets [Concomitant]
     Route: 048
     Dates: start: 20231123, end: 20231124
  83. AMBROXOL HYDROCHLORIDE [Concomitant]
     Active Substance: AMBROXOL HYDROCHLORIDE
     Route: 042
     Dates: start: 20231123, end: 20231204
  84. AMBROXOL HYDROCHLORIDE [Concomitant]
     Active Substance: AMBROXOL HYDROCHLORIDE
     Route: 042
     Dates: start: 20231210, end: 20231210
  85. Chymotrypsin for Injection [Concomitant]
     Route: 055
     Dates: start: 20231124, end: 20231209
  86. HUMAN IMMUNOGLOBULIN G [Concomitant]
     Active Substance: HUMAN IMMUNOGLOBULIN G
     Route: 041
     Dates: start: 20231124, end: 20231129
  87. SULFAMETHOXAZOLE [Concomitant]
     Active Substance: SULFAMETHOXAZOLE
     Route: 048
     Dates: start: 20231124
  88. Acetylcysteine Solution for Inhalation [Concomitant]
     Route: 055
     Dates: start: 20231124, end: 20231124
  89. Urokinase for injection [Concomitant]
     Route: 041
     Dates: start: 20231125, end: 20231125
  90. Urokinase for injection [Concomitant]
     Route: 041
     Dates: start: 20231208, end: 20231208
  91. IBUPROFEN [Concomitant]
     Active Substance: IBUPROFEN
     Route: 048
     Dates: start: 20231126, end: 20231126
  92. IBUPROFEN [Concomitant]
     Active Substance: IBUPROFEN
     Route: 048
     Dates: start: 20231211, end: 20231211
  93. TIGECYCLINE [Concomitant]
     Active Substance: TIGECYCLINE
     Route: 041
     Dates: start: 20231127, end: 20231207
  94. TIGECYCLINE [Concomitant]
     Active Substance: TIGECYCLINE
     Route: 041
     Dates: start: 20231209, end: 20231209
  95. TIGECYCLINE [Concomitant]
     Active Substance: TIGECYCLINE
     Route: 041
     Dates: start: 20231211, end: 20231211
  96. TERBINAFINE HYDROCHLORIDE [Concomitant]
     Active Substance: TERBINAFINE HYDROCHLORIDE
     Dates: start: 20231127, end: 20231204
  97. Ceftazidime avibactam sodium for injection [Concomitant]
     Dates: start: 20231128, end: 20231209
  98. Posaconazole oral solution [Concomitant]
     Route: 048
     Dates: start: 20231128, end: 20231128
  99. MOSAPRIDE CITRATE [Concomitant]
     Active Substance: MOSAPRIDE CITRATE
     Route: 048
     Dates: start: 20231208, end: 20231208
  100. Liquid paraffin wax [Concomitant]
     Dates: start: 20231208, end: 20231208
  101. DOPAMINE [Concomitant]
     Active Substance: DOPAMINE HYDROCHLORIDE
     Dates: start: 20231209, end: 20231212
  102. Simethicone emulsion [Concomitant]
     Dates: start: 20231209, end: 20231209
  103. Glycerin enema [Concomitant]
     Dates: start: 20231210, end: 20231210
  104. Promethazine injection [Concomitant]
     Route: 030
     Dates: start: 20231120, end: 20231122
  105. Promethazine injection [Concomitant]
     Route: 030
     Dates: start: 20231121, end: 20231121
  106. ACYCLOVIR [Concomitant]
     Active Substance: ACYCLOVIR
     Route: 048
     Dates: start: 20231205, end: 20231205
  107. Cilastatin sodium salt needle [Concomitant]
     Route: 041
     Dates: start: 20231127, end: 20231128
  108. Cilastatin sodium salt needle [Concomitant]
     Route: 041
     Dates: start: 20231209, end: 20231209
  109. Cilastatin sodium salt needle [Concomitant]
     Route: 041
     Dates: start: 20231211, end: 20231211
  110. EUCALYPTUS [Concomitant]
     Active Substance: EUCALYPTUS GLOBULUS POLLEN\EUCALYPTUS GUM
     Route: 048
     Dates: start: 20231207
  111. dopamine hydrochloride injection [Concomitant]
     Dates: start: 20231209, end: 20231212
  112. dopamine hydrochloride injection [Concomitant]
     Dates: start: 20231210, end: 20231211
  113. dopamine hydrochloride injection [Concomitant]
     Dates: start: 20231212, end: 20231213
  114. Succinyl gelatin injection [Concomitant]
     Route: 041
     Dates: start: 20231209, end: 20231209
  115. Succinyl gelatin injection [Concomitant]
     Route: 041
  116. CEFTAZIDIME [Concomitant]
     Active Substance: CEFTAZIDIME
     Route: 041
     Dates: start: 20231107, end: 20231109
  117. CEFTAZIDIME [Concomitant]
     Active Substance: CEFTAZIDIME
     Route: 041
     Dates: start: 20231108, end: 20231109
  118. Morphine sulfate sustained release tablet [Concomitant]
     Route: 048
     Dates: start: 20231108, end: 20231108
  119. Morphine sulfate sustained release tablet [Concomitant]
     Route: 048
     Dates: start: 20231109, end: 20231109
  120. Morphine sulfate sustained release tablet [Concomitant]
     Route: 048
     Dates: start: 20231115, end: 20231115
  121. Pethidine hydrochloride injection [Concomitant]
     Route: 030
     Dates: start: 20231110, end: 20231110
  122. ESTAZOLAM [Concomitant]
     Active Substance: ESTAZOLAM
     Route: 048
     Dates: start: 20231108, end: 20231204
  123. ESTAZOLAM [Concomitant]
     Active Substance: ESTAZOLAM
     Route: 048
  124. isosorbide dinitrate injection [Concomitant]
     Dates: start: 20231121, end: 20231126
  125. isosorbide dinitrate injection [Concomitant]
     Route: 042
     Dates: start: 20231127, end: 20231206
  126. Light liquid paraffin wax [Concomitant]
     Route: 048
  127. Compound paracetamol tablets [Concomitant]
     Route: 048
  128. Paracetamol oral suspension [Concomitant]
     Route: 048
     Dates: start: 20231211
  129. LACTULOSE [Concomitant]
     Active Substance: LACTULOSE
     Route: 048
     Dates: start: 20231109, end: 20231109
  130. PALONOSETRON HYDROCHLORIDE [Concomitant]
     Active Substance: PALONOSETRON HYDROCHLORIDE
     Route: 048
     Dates: start: 20231110, end: 20231110
  131. FENTANYL [Concomitant]
     Active Substance: FENTANYL
     Dates: start: 20231107, end: 20231107
  132. FENTANYL [Concomitant]
     Active Substance: FENTANYL
     Dates: start: 20231110, end: 20231110
  133. EUCALYPTOL [Concomitant]
     Active Substance: EUCALYPTOL
  134. ACETAMINOPHEN [Concomitant]
     Active Substance: ACETAMINOPHEN
     Route: 048
     Dates: start: 20231110, end: 20231112
  135. OMEPRAZOLE SODIUM [Concomitant]
     Active Substance: OMEPRAZOLE SODIUM
     Route: 042
     Dates: start: 20231211, end: 20231213
  136. PROMETHAZINE HYDROCHLORIDE [Concomitant]
     Active Substance: PROMETHAZINE HYDROCHLORIDE
     Route: 030
     Dates: start: 20231110, end: 20231112
  137. PROMETHAZINE HYDROCHLORIDE [Concomitant]
     Active Substance: PROMETHAZINE HYDROCHLORIDE
     Route: 030
     Dates: start: 20231116, end: 20231116
  138. HERBALS [Concomitant]
     Active Substance: HERBALS
  139. INDOMETHACIN [Concomitant]
     Active Substance: INDOMETHACIN
  140. Enteral Nutritional Suspension [Concomitant]
  141. Human granulocyte-macrophage colony-stimulating factor for injection [Concomitant]

REACTIONS (27)
  - Bacterial sepsis [Not Recovered/Not Resolved]
  - Anaemia [Not Recovered/Not Resolved]
  - White blood cell count decreased [Recovered/Resolved]
  - Neutrophil count decreased [Recovered/Resolved]
  - Gamma-glutamyltransferase increased [Recovered/Resolved]
  - Enterococcal infection [Not Recovered/Not Resolved]
  - Escherichia infection [Not Recovered/Not Resolved]
  - Effusion [Not Recovered/Not Resolved]
  - Pneumonia [Not Recovered/Not Resolved]
  - Platelet count decreased [Not Recovered/Not Resolved]
  - Hypoalbuminaemia [Not Recovered/Not Resolved]
  - Alanine aminotransferase increased [Recovered/Resolved]
  - Blood alkaline phosphatase increased [Recovered/Resolved]
  - Myelosuppression [Recovered/Resolved]
  - Myocardial injury [Not Recovered/Not Resolved]
  - Drug-induced liver injury [Not Recovered/Not Resolved]
  - Hypocalcaemia [Not Recovered/Not Resolved]
  - Hypochloraemia [Not Recovered/Not Resolved]
  - Hyperuricaemia [Not Recovered/Not Resolved]
  - Lymphocyte count increased [Recovered/Resolved]
  - Hypophosphataemia [Recovered/Resolved]
  - Hypokalaemia [Recovered/Resolved]
  - Acute kidney injury [Not Recovered/Not Resolved]
  - Blood creatinine increased [Not Recovered/Not Resolved]
  - Hypokalaemia [Recovered/Resolved]
  - Hypomagnesaemia [Not Recovered/Not Resolved]
  - Blood bilirubin increased [Recovered/Resolved]

NARRATIVE: CASE EVENT DATE: 20231113
